FAERS Safety Report 4931333-8 (Version None)
Quarter: 2006Q1

REPORT INFORMATION
  Report Type: 
  Country: None (occurrence: None)
  Receive Date: 20060228
  Receipt Date: 20060213
  Transmission Date: 20060701
  Serious: Yes (Hospitalization)
  Sender: FDA-Public Use
  Company Number: 200403364

PATIENT
  Age: 39 Year
  Sex: Female
  Weight: 53.978 kg

DRUGS (6)
  1. BOTOX COSMETIC [Suspect]
     Indication: SKIN WRINKLING
     Dosage: 25 UNITS PRN IM
     Route: 030
     Dates: start: 20040329
  2. BOTOX COSMETIC [Suspect]
     Indication: SKIN WRINKLING
     Dosage: 15 UNITS PRN IM
     Route: 030
     Dates: start: 20040420
  3. CELEXA [Concomitant]
  4. ZOLOFT [Concomitant]
  5. VALIUM [Concomitant]
  6. LEXAPRO [Concomitant]

REACTIONS (34)
  - ACUTE SINUSITIS [None]
  - ANXIETY [None]
  - AORTIC VALVE INCOMPETENCE [None]
  - ASTHENIA [None]
  - ASTHENOPIA [None]
  - COUGH [None]
  - DIZZINESS [None]
  - DYSAESTHESIA [None]
  - DYSPNOEA [None]
  - EYELID PTOSIS [None]
  - FACIAL DYSMORPHISM [None]
  - FACIAL PAIN [None]
  - FEELING JITTERY [None]
  - HEADACHE [None]
  - HEART RATE INCREASED [None]
  - HYPERVENTILATION [None]
  - HYPOAESTHESIA [None]
  - INJECTION SITE SWELLING [None]
  - INSOMNIA [None]
  - LACUNAR INFARCTION [None]
  - MUSCULAR WEAKNESS [None]
  - NAUSEA [None]
  - PAIN IN EXTREMITY [None]
  - PANIC DISORDER [None]
  - PARAESTHESIA [None]
  - PERIORBITAL OEDEMA [None]
  - POSTNASAL DRIP [None]
  - PULSE ABNORMAL [None]
  - PYREXIA [None]
  - RHINITIS [None]
  - RHINORRHOEA [None]
  - SENSORY LOSS [None]
  - THERAPEUTIC RESPONSE DECREASED [None]
  - VOMITING [None]
